FAERS Safety Report 9239996 (Version 1)
Quarter: 2013Q2

REPORT INFORMATION
  Report Type: Spontaneous
  Country: JP (occurrence: JP)
  Receive Date: 20130418
  Receipt Date: 20130418
  Transmission Date: 20140414
  Serious: Yes (Other)
  Sender: FDA-Public Use
  Company Number: JP-GLAXOSMITHKLINE-B0882108A

PATIENT
  Age: 65 Year
  Sex: Male

DRUGS (1)
  1. FLUTIDE DISKUS [Suspect]
     Indication: ASTHMA
     Dosage: 200MCG PER DAY
     Route: 055
     Dates: start: 2006

REACTIONS (1)
  - Haemorrhage subcutaneous [Not Recovered/Not Resolved]
